FAERS Safety Report 6384975-X (Version None)
Quarter: 2009Q4

REPORT INFORMATION
  Report Type: 
  Country: None (occurrence: None)
  Receive Date: 20091002
  Receipt Date: 20090922
  Transmission Date: 20100525
  Serious: Yes (Hospitalization, Other)
  Sender: FDA-Public Use
  Company Number: IE-ROCHE-651619

PATIENT
  Age: 21 Year
  Sex: Male

DRUGS (4)
  1. DIAZEPAM [Suspect]
     Indication: DRUG USE FOR UNKNOWN INDICATION
     Dosage: PATIENT TOOK 20 TABLETS ON AN UNKNOWN DATE.
     Route: 065
  2. HEROIN [Suspect]
     Indication: DRUG USE FOR UNKNOWN INDICATION
     Route: 065
  3. COCAINE [Suspect]
     Indication: DRUG USE FOR UNKNOWN INDICATION
     Route: 065
  4. METHADONE HYDROCHLORIDE [Suspect]
     Indication: DRUG USE FOR UNKNOWN INDICATION
     Route: 065

REACTIONS (9)
  - BRACHIAL PLEXOPATHY [None]
  - COMPARTMENT SYNDROME [None]
  - DECUBITUS ULCER [None]
  - DRUG ABUSE [None]
  - HEART INJURY [None]
  - OVERDOSE [None]
  - PERONEAL NERVE PALSY [None]
  - RADIAL NERVE PALSY [None]
  - RHABDOMYOLYSIS [None]
